FAERS Safety Report 7417254-X (Version None)
Quarter: 2011Q2

REPORT INFORMATION
  Report Type: 
  Country: None (occurrence: None)
  Receive Date: 20110415
  Receipt Date: 20110403
  Transmission Date: 20111010
  Serious: Yes (Other)
  Sender: FDA-Public Use
  Company Number: US-BAYER-201033829NA

PATIENT
  Age: 27 Year
  Sex: Female
  Weight: 86 kg

DRUGS (11)
  1. OCELLA [Suspect]
     Indication: ORAL CONTRACEPTION
     Dosage: UNK UNK, UNK
     Route: 048
     Dates: start: 20010701, end: 20061201
  2. DICYCLOMINE [Concomitant]
     Dosage: 20 MG, TID
     Route: 048
     Dates: start: 20040308
  3. YASMIN [Suspect]
     Indication: ORAL CONTRACEPTION
     Route: 048
     Dates: start: 20010101
  4. HYDROCODONE BITARTRATE AND ACETAMINOPHEN [Concomitant]
     Dosage: UNK
     Route: 048
     Dates: start: 20040308
  5. PROMETHAZINE [Concomitant]
     Dosage: 25 MG, UNK
     Route: 048
     Dates: start: 20040331
  6. HYOSCYAMINE SULFATE [Concomitant]
     Indication: MUSCLE SPASMS
     Dosage: 0.125 MG, UNK
     Route: 048
     Dates: start: 20040503
  7. ZELNORM [Concomitant]
     Indication: CONSTIPATION
     Dosage: UNK UNK, BID
     Dates: start: 20040101, end: 20040801
  8. FIBER [Concomitant]
     Indication: CONSTIPATION
     Dosage: UNK UNK, BID
     Dates: start: 20031001, end: 20040701
  9. MIRALAX [Concomitant]
     Indication: CONSTIPATION
     Dosage: UNK UNK, QD
     Dates: start: 20031001, end: 20040701
  10. NEXIUM [Concomitant]
     Indication: DYSPEPSIA
     Dosage: UNK UNK, QD
     Dates: start: 20040101, end: 20040701
  11. YAZ [Suspect]
     Indication: ORAL CONTRACEPTION
     Dosage: UNK UNK, UNK
     Route: 048
     Dates: start: 20010701, end: 20061201

REACTIONS (3)
  - PULMONARY EMBOLISM [None]
  - DEEP VEIN THROMBOSIS [None]
  - GALLBLADDER DISORDER [None]
